FAERS Safety Report 16712005 (Version 1)
Quarter: 2019Q3

REPORT INFORMATION
  Report Type: Spontaneous
  Country: US (occurrence: US)
  Receive Date: 20190816
  Receipt Date: 20190816
  Transmission Date: 20191004
  Serious: No
  Sender: FDA-Public Use
  Company Number: US-TEVA-2019-US-1078309

PATIENT
  Age: 80 Year
  Sex: Male

DRUGS (3)
  1. ACITRETIN. [Suspect]
     Active Substance: ACITRETIN
     Indication: DERMATITIS PSORIASIFORM
     Dosage: 25 MILLIGRAM DAILY;
     Route: 048
  2. ACITRETIN. [Suspect]
     Active Substance: ACITRETIN
     Dosage: 10 MILLIGRAM DAILY;
     Route: 048
  3. PREDNISONE. [Concomitant]
     Active Substance: PREDNISONE
     Route: 065

REACTIONS (1)
  - Dermatitis psoriasiform [Not Recovered/Not Resolved]
